FAERS Safety Report 18090429 (Version 1)
Quarter: 2020Q3

REPORT INFORMATION
  Report Type: Spontaneous
  Country: FR (occurrence: FR)
  Receive Date: 20200730
  Receipt Date: 20200730
  Transmission Date: 20201103
  Serious: Yes (Other)
  Sender: FDA-Public Use
  Company Number: FR-TEVA-2020-FR-1806769

PATIENT
  Age: 48 Year
  Sex: Female
  Weight: 67 kg

DRUGS (4)
  1. GENVOYA [Concomitant]
     Active Substance: COBICISTAT\ELVITEGRAVIR\EMTRICITABINE\TENOFOVIR ALAFENAMIDE FUMARATE
     Dosage: 1 DF
     Route: 048
  2. HYDROCORTISONE. [Concomitant]
     Active Substance: HYDROCORTISONE
     Dosage: 40 MG
     Route: 048
     Dates: start: 201606
  3. LEVOFLOXACINE [Suspect]
     Active Substance: LEVOFLOXACIN
     Indication: INFECTION
     Dosage: 500 MG
     Route: 048
     Dates: start: 20200516, end: 20200517
  4. CEFOTAXIME BASE [Suspect]
     Active Substance: CEFOTAXIME SODIUM
     Indication: INFECTION
     Dosage: 4 G
     Route: 042
     Dates: start: 20200505, end: 20200516

REACTIONS (3)
  - Seizure [Recovering/Resolving]
  - Confusional state [Recovered/Resolved]
  - Status epilepticus [Recovering/Resolving]

NARRATIVE: CASE EVENT DATE: 20200516
